FAERS Safety Report 6503764-6 (Version None)
Quarter: 2009Q4

REPORT INFORMATION
  Report Type: 
  Country: None (occurrence: None)
  Receive Date: 20091217
  Receipt Date: 20091214
  Transmission Date: 20100525
  Serious: Yes (Death, Hospitalization)
  Sender: FDA-Public Use
  Company Number: FR-BAYER-200942765GPV

PATIENT
  Age: 60 Year
  Sex: Male
  Weight: 120 kg

DRUGS (4)
  1. NEXAVAR [Suspect]
     Indication: HEPATIC NEOPLASM MALIGNANT
     Route: 048
     Dates: start: 20090926, end: 20091104
  2. AVLOCARDYL [Concomitant]
     Indication: HYPERTENSION
     Route: 048
  3. GLUCOPHAGE [Concomitant]
     Indication: DIABETES MELLITUS
     Route: 048
     Dates: start: 20090926
  4. TEMESTA [Concomitant]
     Route: 048
     Dates: start: 20090918

REACTIONS (4)
  - ASCITES [None]
  - ENCEPHALOPATHY [None]
  - FATIGUE [None]
  - HEPATIC NEOPLASM MALIGNANT [None]
